FAERS Safety Report 11376539 (Version 1)
Quarter: 2015Q3

REPORT INFORMATION
  Report Type: Spontaneous
  Country: US (occurrence: US)
  Receive Date: 20150813
  Receipt Date: 20150813
  Transmission Date: 20151125
  Serious: No
  Sender: FDA-Public Use
  Company Number: US-ENDO PHARMACEUTICALS INC.-2015-001964

PATIENT
  Age: 59 Year
  Sex: Male
  Weight: 84.9 kg

DRUGS (3)
  1. ASPIRIN. [Concomitant]
     Active Substance: ASPIRIN
     Indication: ANTICOAGULANT THERAPY
  2. XIAFLEX [Suspect]
     Active Substance: COLLAGENASE CLOSTRIDIUM HISTOLYTICUM
     Indication: PEYRONIE^S DISEASE
     Route: 065
     Dates: start: 20150710
  3. XIAFLEX [Suspect]
     Active Substance: COLLAGENASE CLOSTRIDIUM HISTOLYTICUM
     Route: 065
     Dates: start: 20150708

REACTIONS (2)
  - Penile pain [Not Recovered/Not Resolved]
  - Penile swelling [Not Recovered/Not Resolved]

NARRATIVE: CASE EVENT DATE: 20150708
